FAERS Safety Report 10750489 (Version 2)
Quarter: 2015Q1

REPORT INFORMATION
  Report Type: Spontaneous
  Country: JP (occurrence: JP)
  Receive Date: 20150130
  Receipt Date: 20150206
  Transmission Date: 20150721
  Serious: Yes (Hospitalization, Other)
  Sender: FDA-Public Use
  Company Number: JP-PFIZER INC-2015034459

PATIENT
  Age: 58 Year
  Sex: Male
  Weight: 58 kg

DRUGS (169)
  1. CAMPTO [Suspect]
     Active Substance: IRINOTECAN
     Dosage: 180 MG/M2,  1X/DAY
     Route: 041
     Dates: start: 20140116, end: 20140116
  2. CAMPTO [Suspect]
     Active Substance: IRINOTECAN
     Dosage: 180 MG/M2,  1X/DAY
     Route: 041
     Dates: start: 20140213, end: 20140213
  3. CAMPTO [Suspect]
     Active Substance: IRINOTECAN
     Dosage: 180 MG/M2,  1X/DAY
     Route: 041
     Dates: start: 20140605, end: 20140605
  4. CAMPTO [Suspect]
     Active Substance: IRINOTECAN
     Dosage: 180 MG/M2,  1X/DAY
     Route: 041
     Dates: start: 20140814, end: 20140814
  5. CAMPTO [Suspect]
     Active Substance: IRINOTECAN
     Dosage: 180 MG/M2,  1X/DAY
     Route: 041
     Dates: start: 20141023, end: 20141023
  6. LEVOLEUCOVORIN CALCIUM [Suspect]
     Active Substance: LEVOLEUCOVORIN CALCIUM
     Dosage: 200 MG/M2,  1X/DAY
     Route: 041
     Dates: start: 20131024, end: 20131024
  7. LEVOLEUCOVORIN CALCIUM [Suspect]
     Active Substance: LEVOLEUCOVORIN CALCIUM
     Dosage: 200 MG/M2,  1X/DAY
     Route: 041
     Dates: start: 20131121, end: 20131121
  8. LEVOLEUCOVORIN CALCIUM [Suspect]
     Active Substance: LEVOLEUCOVORIN CALCIUM
     Dosage: 200 MG/M2,  1X/DAY
     Route: 041
     Dates: start: 20140703, end: 20140703
  9. 5-FU [Suspect]
     Active Substance: FLUOROURACIL
     Dosage: 400 MG/M2,  1X/DAY
     Route: 040
     Dates: start: 20140130, end: 20140130
  10. 5-FU [Suspect]
     Active Substance: FLUOROURACIL
     Dosage: 2400 MG/M2, ONCE IN 2 DAYS
     Route: 041
     Dates: start: 20140213, end: 20140213
  11. 5-FU [Suspect]
     Active Substance: FLUOROURACIL
     Dosage: 400 MG/M2,  1X/DAY
     Route: 040
     Dates: start: 20140313, end: 20140313
  12. 5-FU [Suspect]
     Active Substance: FLUOROURACIL
     Dosage: 2400 MG/M2, ONCE IN 2 DAYS
     Route: 041
     Dates: start: 20140313, end: 20140313
  13. 5-FU [Suspect]
     Active Substance: FLUOROURACIL
     Dosage: 2400 MG/M2, ONCE IN 2 DAYS
     Route: 041
     Dates: start: 20140522, end: 20140522
  14. 5-FU [Suspect]
     Active Substance: FLUOROURACIL
     Dosage: 400 MG/M2,  1X/DAY
     Route: 040
     Dates: start: 20140717, end: 20140717
  15. 5-FU [Suspect]
     Active Substance: FLUOROURACIL
     Dosage: 400 MG/M2,  1X/DAY
     Route: 040
     Dates: start: 20140731, end: 20140731
  16. AVE0005 [Suspect]
     Active Substance: AFLIBERCEPT
     Dosage: 4 MG/KG, 1X/DAY
     Route: 041
     Dates: start: 20140130, end: 20140130
  17. AVE0005 [Suspect]
     Active Substance: AFLIBERCEPT
     Dosage: 4 MG/KG, 1X/DAY
     Route: 041
     Dates: start: 20140522, end: 20140522
  18. AVE0005 [Suspect]
     Active Substance: AFLIBERCEPT
     Dosage: 4 MG/KG, 1X/DAY
     Route: 041
     Dates: start: 20140605, end: 20140605
  19. AVE0005 [Suspect]
     Active Substance: AFLIBERCEPT
     Dosage: 4 MG/KG, 1X/DAY
     Route: 041
     Dates: start: 20140703, end: 20140703
  20. LYRICA [Concomitant]
     Active Substance: PREGABALIN
     Dosage: UNK
     Dates: start: 20131114
  21. KERATINAMIN [Concomitant]
     Active Substance: UREA
     Dosage: UNK
     Dates: start: 20131211
  22. MYSER [Concomitant]
     Active Substance: DIFLUPREDNATE
     Dosage: UNK
     Dates: start: 20131127
  23. BROTIZOLAM [Concomitant]
     Active Substance: BROTIZOLAM
     Dosage: UNK
     Dates: start: 20140403
  24. NOVO HEPARIN AVENTIS [Concomitant]
     Dosage: UNK
     Dates: start: 20150107
  25. CAMPTO [Suspect]
     Active Substance: IRINOTECAN
     Dosage: 180 MG/M2, 1X/DAY
     Route: 041
     Dates: start: 20140327, end: 20140327
  26. CAMPTO [Suspect]
     Active Substance: IRINOTECAN
     Dosage: 180 MG/M2,  1X/DAY
     Route: 041
     Dates: start: 20140424, end: 20140424
  27. CAMPTO [Suspect]
     Active Substance: IRINOTECAN
     Dosage: 180 MG/M2,  1X/DAY
     Route: 041
     Dates: start: 20140703, end: 20140703
  28. CAMPTO [Suspect]
     Active Substance: IRINOTECAN
     Dosage: 180 MG/M2,  1X/DAY
     Route: 041
     Dates: start: 20140828, end: 20140828
  29. LEVOLEUCOVORIN CALCIUM [Suspect]
     Active Substance: LEVOLEUCOVORIN CALCIUM
     Dosage: 200 MG/M2,  1X/DAY
     Route: 041
     Dates: start: 20131205, end: 20131205
  30. LEVOLEUCOVORIN CALCIUM [Suspect]
     Active Substance: LEVOLEUCOVORIN CALCIUM
     Dosage: 200 MG/M2,  1X/DAY
     Route: 041
     Dates: start: 20140313, end: 20140313
  31. LEVOLEUCOVORIN CALCIUM [Suspect]
     Active Substance: LEVOLEUCOVORIN CALCIUM
     Dosage: 200 MG/M2,  1X/DAY
     Route: 041
     Dates: start: 20140410, end: 20140410
  32. LEVOLEUCOVORIN CALCIUM [Suspect]
     Active Substance: LEVOLEUCOVORIN CALCIUM
     Dosage: 200 MG/M2,  1X/DAY
     Route: 041
     Dates: start: 20140508, end: 20140508
  33. LEVOLEUCOVORIN CALCIUM [Suspect]
     Active Substance: LEVOLEUCOVORIN CALCIUM
     Dosage: 200 MG/M2,  1X/DAY
     Route: 041
     Dates: start: 20140731, end: 20140731
  34. LEVOLEUCOVORIN CALCIUM [Suspect]
     Active Substance: LEVOLEUCOVORIN CALCIUM
     Dosage: 200 MG/M2,  1X/DAY
     Route: 041
     Dates: start: 20141023, end: 20141023
  35. LEVOLEUCOVORIN CALCIUM [Suspect]
     Active Substance: LEVOLEUCOVORIN CALCIUM
     Dosage: 200 MG/M2,  1X/DAY
     Route: 041
     Dates: start: 20141106, end: 20141106
  36. 5-FU [Suspect]
     Active Substance: FLUOROURACIL
     Dosage: 400 MG/M2,  1X/DAY
     Route: 040
     Dates: start: 20131107, end: 20131107
  37. 5-FU [Suspect]
     Active Substance: FLUOROURACIL
     Dosage: 2400 MG/M2, ONCE IN 2 DAYS
     Route: 041
     Dates: start: 20140410, end: 20140410
  38. 5-FU [Suspect]
     Active Substance: FLUOROURACIL
     Dosage: 2400 MG/M2, ONCE IN 2 DAYS
     Route: 041
     Dates: start: 20140508, end: 20140508
  39. 5-FU [Suspect]
     Active Substance: FLUOROURACIL
     Dosage: 2400 MG/M2, ONCE IN 2 DAYS
     Route: 041
     Dates: start: 20140605, end: 20140605
  40. 5-FU [Suspect]
     Active Substance: FLUOROURACIL
     Dosage: 400 MG/M2,  1X/DAY
     Route: 040
     Dates: start: 20140703, end: 20140703
  41. 5-FU [Suspect]
     Active Substance: FLUOROURACIL
     Dosage: 2400 MG/M2, ONCE IN 2 DAYS
     Route: 041
     Dates: start: 20140828, end: 20140828
  42. AVE0005 [Suspect]
     Active Substance: AFLIBERCEPT
     Indication: RECTAL CANCER
     Dosage: 4 MG/KG,  1X/DAY
     Route: 041
     Dates: start: 20131010, end: 20131010
  43. AVE0005 [Suspect]
     Active Substance: AFLIBERCEPT
     Dosage: 4 MG/KG, 1X/DAY
     Route: 041
     Dates: start: 20140213, end: 20140213
  44. AVE0005 [Suspect]
     Active Substance: AFLIBERCEPT
     Dosage: 4 MG/KG, 1X/DAY
     Route: 041
     Dates: start: 20140814, end: 20140814
  45. AVE0005 [Suspect]
     Active Substance: AFLIBERCEPT
     Dosage: 4 MG/KG, 1X/DAY
     Route: 041
     Dates: start: 20140925, end: 20140925
  46. AVE0005 [Suspect]
     Active Substance: AFLIBERCEPT
     Dosage: 4 MG/KG, 1X/DAY
     Route: 041
     Dates: start: 20141009, end: 20141009
  47. VENOGLOBULIN [Concomitant]
     Active Substance: HUMAN IMMUNOGLOBULIN G
     Dosage: UNK
     Dates: start: 20150108, end: 20150110
  48. CAMPTO [Suspect]
     Active Substance: IRINOTECAN
     Dosage: 180 MG/M2,  1X/DAY
     Route: 041
     Dates: start: 20131205, end: 20131205
  49. CAMPTO [Suspect]
     Active Substance: IRINOTECAN
     Dosage: 180 MG/M2,  1X/DAY
     Route: 041
     Dates: start: 20140313, end: 20140313
  50. CAMPTO [Suspect]
     Active Substance: IRINOTECAN
     Dosage: 180 MG/M2,  1X/DAY
     Route: 041
     Dates: start: 20140508, end: 20140508
  51. CAMPTO [Suspect]
     Active Substance: IRINOTECAN
     Dosage: 180 MG/M2,  1X/DAY
     Route: 041
     Dates: start: 20141009, end: 20141009
  52. LEVOLEUCOVORIN CALCIUM [Suspect]
     Active Substance: LEVOLEUCOVORIN CALCIUM
     Dosage: 200 MG/M2,  1X/DAY
     Route: 041
     Dates: start: 20140130, end: 20140130
  53. LEVOLEUCOVORIN CALCIUM [Suspect]
     Active Substance: LEVOLEUCOVORIN CALCIUM
     Dosage: 200 MG/M2,  1X/DAY
     Route: 041
     Dates: start: 20140522, end: 20140522
  54. LEVOLEUCOVORIN CALCIUM [Suspect]
     Active Substance: LEVOLEUCOVORIN CALCIUM
     Dosage: 200 MG/M2,  1X/DAY
     Route: 041
     Dates: start: 20140619, end: 20140619
  55. LEVOLEUCOVORIN CALCIUM [Suspect]
     Active Substance: LEVOLEUCOVORIN CALCIUM
     Dosage: 200 MG/M2,  1X/DAY
     Route: 041
     Dates: start: 20140814, end: 20140814
  56. 5-FU [Suspect]
     Active Substance: FLUOROURACIL
     Indication: RECTAL CANCER
     Dosage: 400 MG/M2,  1X/DAY
     Route: 040
     Dates: start: 20131010, end: 20131010
  57. 5-FU [Suspect]
     Active Substance: FLUOROURACIL
     Dosage: 400 MG/M2,  1X/DAY
     Route: 040
     Dates: start: 20131219, end: 20131219
  58. 5-FU [Suspect]
     Active Substance: FLUOROURACIL
     Dosage: 2400 MG/M2, ONCE IN 2 DAYS
     Route: 041
     Dates: start: 20140102, end: 20140102
  59. 5-FU [Suspect]
     Active Substance: FLUOROURACIL
     Dosage: 400 MG/M2, 1X/DAY
     Route: 040
     Dates: start: 20140116, end: 20140116
  60. 5-FU [Suspect]
     Active Substance: FLUOROURACIL
     Dosage: 400 MG/M2,  1X/DAY
     Route: 040
     Dates: start: 20140213, end: 20140213
  61. 5-FU [Suspect]
     Active Substance: FLUOROURACIL
     Dosage: 2400 MG/M2, ONCE IN 2 DAYS
     Route: 041
     Dates: start: 20140227, end: 20140227
  62. 5-FU [Suspect]
     Active Substance: FLUOROURACIL
     Dosage: 400 MG/M2,  1X/DAY
     Route: 040
     Dates: start: 20140522, end: 20140522
  63. 5-FU [Suspect]
     Active Substance: FLUOROURACIL
     Dosage: 400 MG/M2,  1X/DAY
     Route: 040
     Dates: start: 20140619, end: 20140619
  64. 5-FU [Suspect]
     Active Substance: FLUOROURACIL
     Dosage: 400 MG/M2,  1X/DAY
     Route: 040
     Dates: start: 20140814, end: 20140814
  65. 5-FU [Suspect]
     Active Substance: FLUOROURACIL
     Dosage: 2400 MG/M2,ONCE IN 2 DAYS
     Route: 041
     Dates: start: 20140911, end: 20140911
  66. AVE0005 [Suspect]
     Active Substance: AFLIBERCEPT
     Dosage: 4 MG/KG, 1X/DAY
     Route: 041
     Dates: start: 20131121, end: 20131121
  67. AVE0005 [Suspect]
     Active Substance: AFLIBERCEPT
     Dosage: 4 MG/KG, 1X/DAY
     Route: 041
     Dates: start: 20140327, end: 20140327
  68. AVE0005 [Suspect]
     Active Substance: AFLIBERCEPT
     Dosage: 4 MG/KG, 1X/DAY
     Route: 041
     Dates: start: 20140717, end: 20140717
  69. TEPRENONE [Concomitant]
     Active Substance: TEPRENONE
     Dosage: UNK
     Dates: start: 20140403
  70. AZUNOL [Concomitant]
     Active Substance: SODIUM GUALENATE
     Dosage: UNK
     Dates: start: 20140807
  71. NONTHRON [Concomitant]
     Dosage: UNK
     Dates: start: 20150107, end: 20150108
  72. HUMALOG [Concomitant]
     Active Substance: INSULIN LISPRO
     Dosage: UNK
     Dates: start: 20150111
  73. CAMPTO [Suspect]
     Active Substance: IRINOTECAN
     Dosage: 180 MG/M2,  1X/DAY
     Route: 041
     Dates: start: 20131219, end: 20131219
  74. CAMPTO [Suspect]
     Active Substance: IRINOTECAN
     Dosage: 180 MG/M2,  1X/DAY
     Route: 041
     Dates: start: 20140130, end: 20140130
  75. CAMPTO [Suspect]
     Active Substance: IRINOTECAN
     Dosage: 180 MG/M2,  1X/DAY
     Route: 041
     Dates: start: 20140619, end: 20140619
  76. CAMPTO [Suspect]
     Active Substance: IRINOTECAN
     Dosage: 180 MG/M2,  1X/DAY
     Route: 041
     Dates: start: 20140717, end: 20140717
  77. CAMPTO [Suspect]
     Active Substance: IRINOTECAN
     Dosage: 180 MG/M2,  1X/DAY
     Dates: start: 20140911, end: 20140911
  78. CAMPTO [Suspect]
     Active Substance: IRINOTECAN
     Dosage: 180 MG/M2,  1X/DAY
     Route: 041
     Dates: start: 20140925, end: 20140925
  79. LEVOLEUCOVORIN CALCIUM [Suspect]
     Active Substance: LEVOLEUCOVORIN CALCIUM
     Dosage: 200 MG/M2,  1X/DAY
     Route: 041
     Dates: start: 20140911, end: 20140911
  80. LEVOLEUCOVORIN CALCIUM [Suspect]
     Active Substance: LEVOLEUCOVORIN CALCIUM
     Dosage: 200 MG/M2,  1X/DAY
     Route: 041
     Dates: start: 20140925, end: 20140925
  81. 5-FU [Suspect]
     Active Substance: FLUOROURACIL
     Dosage: 400 MG/M2,  1X/DAY
     Route: 040
     Dates: start: 20140424, end: 20140424
  82. 5-FU [Suspect]
     Active Substance: FLUOROURACIL
     Dosage: 2400 MG/M2, ONCE IN 2 DAYS
     Route: 041
     Dates: start: 20140424, end: 20140424
  83. 5-FU [Suspect]
     Active Substance: FLUOROURACIL
     Dosage: 400 MG/M2,  1X/DAY
     Route: 040
     Dates: start: 20140508, end: 20140508
  84. 5-FU [Suspect]
     Active Substance: FLUOROURACIL
     Dosage: 2400 MG/M2, ONCE IN 2 DAYS
     Route: 041
     Dates: start: 20140703, end: 20140703
  85. AVE0005 [Suspect]
     Active Substance: AFLIBERCEPT
     Dosage: 4 MG/KG, 1X/DAY
     Route: 041
     Dates: start: 20131219, end: 20131219
  86. AVE0005 [Suspect]
     Active Substance: AFLIBERCEPT
     Dosage: 4 MG/KG, 1X/DAY
     Route: 041
     Dates: start: 20140116, end: 20140116
  87. AVE0005 [Suspect]
     Active Substance: AFLIBERCEPT
     Dosage: 4 MG/KG, 1X/DAY
     Route: 041
     Dates: start: 20140227, end: 20140227
  88. AVE0005 [Suspect]
     Active Substance: AFLIBERCEPT
     Dosage: 4 MG/KG, 1X/DAY
     Route: 041
     Dates: start: 20140313, end: 20140313
  89. AVE0005 [Suspect]
     Active Substance: AFLIBERCEPT
     Dosage: 4 MG/KG, 1X/DAY
     Route: 041
     Dates: start: 20140619, end: 20140619
  90. AVE0005 [Suspect]
     Active Substance: AFLIBERCEPT
     Dosage: 4 MG/KG, 1X/DAY
     Route: 041
     Dates: start: 20140828, end: 20140828
  91. OXYNORM [Concomitant]
     Active Substance: OXYCODONE HYDROCHLORIDE
     Dosage: UNK
  92. SOLYUGEN F (ACETATED RINGER) [Concomitant]
     Dosage: UNK
     Dates: start: 20150107, end: 20150107
  93. VITAMIN C [Concomitant]
     Active Substance: ASCORBIC ACID
     Dosage: UNK
     Dates: start: 20150108, end: 20150110
  94. VITAMEDIN CAPSULE [Concomitant]
     Dosage: UNK
     Dates: start: 20150108, end: 20150110
  95. ELNEOPA NO.1 [Concomitant]
     Dosage: UNK
     Dates: start: 20150111
  96. CAMPTO [Suspect]
     Active Substance: IRINOTECAN
     Dosage: 180 MG/M2,  1X/DAY
     Route: 041
     Dates: start: 20131024, end: 20131024
  97. CAMPTO [Suspect]
     Active Substance: IRINOTECAN
     Dosage: 180 MG/M2,  1X/DAY
     Route: 041
     Dates: start: 20131121, end: 20131121
  98. CAMPTO [Suspect]
     Active Substance: IRINOTECAN
     Dosage: 180 MG/M2,  1X/DAY
     Route: 041
     Dates: start: 20140102, end: 20140102
  99. CAMPTO [Suspect]
     Active Substance: IRINOTECAN
     Dosage: 180 MG/M2,  1X/DAY
     Route: 041
     Dates: start: 20140731, end: 20140731
  100. CAMPTO [Suspect]
     Active Substance: IRINOTECAN
     Dosage: 180 MG/M2,  1X/DAY
     Route: 041
     Dates: start: 20141106, end: 20141106
  101. LEVOLEUCOVORIN CALCIUM [Suspect]
     Active Substance: LEVOLEUCOVORIN CALCIUM
     Dosage: 200 MG/M2,  1X/DAY
     Route: 041
     Dates: start: 20131107, end: 20131107
  102. LEVOLEUCOVORIN CALCIUM [Suspect]
     Active Substance: LEVOLEUCOVORIN CALCIUM
     Dosage: 200 MG/M2,  1X/DAY
     Route: 041
     Dates: start: 20131219, end: 20131219
  103. LEVOLEUCOVORIN CALCIUM [Suspect]
     Active Substance: LEVOLEUCOVORIN CALCIUM
     Dosage: 200 MG/M2,  1X/DAY
     Route: 041
     Dates: start: 20140828, end: 20140828
  104. LEVOLEUCOVORIN CALCIUM [Suspect]
     Active Substance: LEVOLEUCOVORIN CALCIUM
     Dosage: 200 MG/M2,  1X/DAY
     Route: 041
     Dates: start: 20141225, end: 20141225
  105. 5-FU [Suspect]
     Active Substance: FLUOROURACIL
     Dosage: 400 MG/M2,  1X/DAY
     Route: 040
     Dates: start: 20131205, end: 20131205
  106. 5-FU [Suspect]
     Active Substance: FLUOROURACIL
     Dosage: 400 MG/M2,  1X/DAY
     Route: 040
     Dates: start: 20140227, end: 20140227
  107. 5-FU [Suspect]
     Active Substance: FLUOROURACIL
     Dosage: 2400 MG/M2, ONCE IN 2 DAYS
     Route: 041
     Dates: start: 20140717, end: 20140717
  108. 5-FU [Suspect]
     Active Substance: FLUOROURACIL
     Dosage: 2400 MG/M2, ONCE IN 2 DAYS
     Route: 041
     Dates: start: 20140814, end: 20140814
  109. 5-FU [Suspect]
     Active Substance: FLUOROURACIL
     Dosage: 400 MG/M2,  1X/DAY
     Route: 040
     Dates: start: 20140828, end: 20140828
  110. AVE0005 [Suspect]
     Active Substance: AFLIBERCEPT
     Dosage: 4 MG/KG, 1X/DAY
     Route: 041
     Dates: start: 20140410, end: 20140410
  111. AVE0005 [Suspect]
     Active Substance: AFLIBERCEPT
     Dosage: 4 MG/KG, 1X/DAY
     Route: 041
     Dates: start: 20140508, end: 20140508
  112. AVE0005 [Suspect]
     Active Substance: AFLIBERCEPT
     Dosage: 4 MG/KG, 1X/DAY
     Route: 041
     Dates: start: 20140731, end: 20140731
  113. AVE0005 [Suspect]
     Active Substance: AFLIBERCEPT
     Dosage: 4 MG/KG, 1X/DAY
     Route: 041
     Dates: start: 20141023, end: 20141023
  114. AVE0005 [Suspect]
     Active Substance: AFLIBERCEPT
     Dosage: 4 MG/KG, 1X/DAY
     Route: 041
     Dates: start: 20141106, end: 20141106
  115. WHITE PETROLATUM [Concomitant]
     Active Substance: PETROLATUM
     Dosage: UNK
     Dates: start: 20131211
  116. CERCINE [Concomitant]
     Active Substance: DIAZEPAM
     Dosage: UNK
     Dates: start: 20150107, end: 20150107
  117. CAMPTO [Suspect]
     Active Substance: IRINOTECAN
     Dosage: 180 MG/M2,  1X/DAY
     Route: 041
     Dates: start: 20140410, end: 20140410
  118. CAMPTO [Suspect]
     Active Substance: IRINOTECAN
     Dosage: 180 MG/M2,  1X/DAY
     Route: 041
     Dates: start: 20140522, end: 20140522
  119. LEVOLEUCOVORIN CALCIUM [Suspect]
     Active Substance: LEVOLEUCOVORIN CALCIUM
     Indication: RECTAL CANCER
     Dosage: 200 MG/M2, 1X/DAY
     Route: 041
     Dates: start: 20131010, end: 20131010
  120. LEVOLEUCOVORIN CALCIUM [Suspect]
     Active Substance: LEVOLEUCOVORIN CALCIUM
     Dosage: 200 MG/M2,  1X/DAY
     Route: 041
     Dates: start: 20140213, end: 20140213
  121. LEVOLEUCOVORIN CALCIUM [Suspect]
     Active Substance: LEVOLEUCOVORIN CALCIUM
     Dosage: 200 MG/M2,  1X/DAY
     Route: 041
     Dates: start: 20140227, end: 20140227
  122. 5-FU [Suspect]
     Active Substance: FLUOROURACIL
     Dosage: 2400 MG/M2, ONCE IN 2 DAYS
     Route: 041
     Dates: start: 20131219, end: 20131219
  123. 5-FU [Suspect]
     Active Substance: FLUOROURACIL
     Dosage: 2400 MG/M2, ONCE IN 2 DAYS
     Route: 041
     Dates: start: 20140116, end: 20140116
  124. 5-FU [Suspect]
     Active Substance: FLUOROURACIL
     Dosage: 400 MG/M2,  1X/DAY
     Route: 040
     Dates: start: 20140605, end: 20140605
  125. 5-FU [Suspect]
     Active Substance: FLUOROURACIL
     Dosage: 400 MG/M2,  1X/DAY
     Route: 040
     Dates: start: 20140911, end: 20140911
  126. AVE0005 [Suspect]
     Active Substance: AFLIBERCEPT
     Dosage: 4 MG/KG, 1X/DAY
     Route: 041
     Dates: start: 20131024, end: 20131024
  127. AVE0005 [Suspect]
     Active Substance: AFLIBERCEPT
     Dosage: 4 MG/KG,  1X/DAY
     Route: 041
     Dates: start: 20131107, end: 20131107
  128. AVE0005 [Suspect]
     Active Substance: AFLIBERCEPT
     Dosage: 4 MG/KG, 1X/DAY
     Route: 041
     Dates: start: 20131205, end: 20131205
  129. AVE0005 [Suspect]
     Active Substance: AFLIBERCEPT
     Dosage: 4 MG/KG, 1X/DAY
     Route: 041
     Dates: start: 20140424, end: 20140424
  130. AMLODIPINE [Concomitant]
     Active Substance: AMLODIPINE BESYLATE
     Dosage: UNK
     Dates: start: 2014
  131. CAMPTO [Suspect]
     Active Substance: IRINOTECAN
     Indication: RECTAL CANCER
     Dosage: 180 MG/M2,  1X/DAY
     Route: 041
     Dates: start: 20131010, end: 20131010
  132. LEVOLEUCOVORIN CALCIUM [Suspect]
     Active Substance: LEVOLEUCOVORIN CALCIUM
     Dosage: 200 MG/M2,  1X/DAY
     Route: 041
     Dates: start: 20140102, end: 20140102
  133. LEVOLEUCOVORIN CALCIUM [Suspect]
     Active Substance: LEVOLEUCOVORIN CALCIUM
     Dosage: 200 MG/M2,  1X/DAY
     Route: 041
     Dates: start: 20140327, end: 20140327
  134. LEVOLEUCOVORIN CALCIUM [Suspect]
     Active Substance: LEVOLEUCOVORIN CALCIUM
     Dosage: 200 MG/M2,  1X/DAY
     Route: 041
     Dates: start: 20140717, end: 20140717
  135. 5-FU [Suspect]
     Active Substance: FLUOROURACIL
     Dosage: 400 MG/M2,  1X/DAY
     Route: 040
     Dates: start: 20131024, end: 20131024
  136. 5-FU [Suspect]
     Active Substance: FLUOROURACIL
     Dosage: 2400 MG/M2, ONCE IN 2 DAYS
     Route: 041
     Dates: start: 20131107, end: 20131107
  137. 5-FU [Suspect]
     Active Substance: FLUOROURACIL
     Dosage: 2400 MG/M2, ONCE IN 2 DAYS
     Route: 041
     Dates: start: 20131205, end: 20131205
  138. 5-FU [Suspect]
     Active Substance: FLUOROURACIL
     Dosage: 400 MG/M2,  1X/DAY
     Route: 040
     Dates: start: 20140102, end: 20140102
  139. 5-FU [Suspect]
     Active Substance: FLUOROURACIL
     Dosage: 2400 MG/M2, ONCE IN 2 DAYS
     Route: 041
     Dates: start: 20140327, end: 20140327
  140. 5-FU [Suspect]
     Active Substance: FLUOROURACIL
     Dosage: 400 MG/M2,  1X/DAY
     Route: 040
     Dates: start: 20140410, end: 20140410
  141. 5-FU [Suspect]
     Active Substance: FLUOROURACIL
     Dosage: 2400 MG/M2,ONCE IN 2 DAYS
     Route: 041
     Dates: start: 20140619, end: 20140619
  142. AVE0005 [Suspect]
     Active Substance: AFLIBERCEPT
     Dosage: 4 MG/KG, 1X/DAY
     Route: 041
     Dates: start: 20140102, end: 20140102
  143. AVE0005 [Suspect]
     Active Substance: AFLIBERCEPT
     Dosage: 4 MG/KG, 1X/DAY
     Route: 041
     Dates: start: 20140911, end: 20140911
  144. AVE0005 [Suspect]
     Active Substance: AFLIBERCEPT
     Dosage: 4 MG/KG, 1X/DAY
     Route: 041
     Dates: start: 20141225, end: 20141225
  145. PARIET [Concomitant]
     Active Substance: RABEPRAZOLE SODIUM
     Dosage: UNK
     Dates: start: 2013
  146. LOXOPROFEN [Concomitant]
     Active Substance: LOXOPROFEN
     Dosage: UNK
     Dates: start: 20140403
  147. SOLDEM 1 [Concomitant]
     Dosage: UNK
     Dates: start: 20150107, end: 20150107
  148. SERENACE [Concomitant]
     Active Substance: HALOPERIDOL
     Dosage: UNK
     Dates: start: 20150109
  149. CAMPTO [Suspect]
     Active Substance: IRINOTECAN
     Dosage: 180 MG/M2,  1X/DAY
     Route: 041
     Dates: start: 20131107, end: 20131107
  150. CAMPTO [Suspect]
     Active Substance: IRINOTECAN
     Dosage: 180 MG/M2,  1X/DAY
     Route: 041
     Dates: start: 20140227, end: 20140227
  151. CAMPTO [Suspect]
     Active Substance: IRINOTECAN
     Dosage: 180 MG/M2,  1X/DAY
     Route: 041
     Dates: start: 20141225, end: 20141225
  152. LEVOLEUCOVORIN CALCIUM [Suspect]
     Active Substance: LEVOLEUCOVORIN CALCIUM
     Dosage: 200 MG/M2,  1X/DAY
     Route: 041
     Dates: start: 20140116, end: 20140116
  153. LEVOLEUCOVORIN CALCIUM [Suspect]
     Active Substance: LEVOLEUCOVORIN CALCIUM
     Dosage: 200 MG/M2,  1X/DAY
     Route: 041
     Dates: start: 20140424, end: 20140424
  154. LEVOLEUCOVORIN CALCIUM [Suspect]
     Active Substance: LEVOLEUCOVORIN CALCIUM
     Dosage: 200 MG/M2,  1X/DAY
     Route: 041
     Dates: start: 20140605, end: 20140605
  155. LEVOLEUCOVORIN CALCIUM [Suspect]
     Active Substance: LEVOLEUCOVORIN CALCIUM
     Dosage: 200 MG/M2,  1X/DAY
     Route: 041
     Dates: start: 20141009, end: 20141009
  156. 5-FU [Suspect]
     Active Substance: FLUOROURACIL
     Dosage: 2400 MG/M2, ONCE IN 2 DAYS
     Route: 041
     Dates: start: 20131010, end: 20131010
  157. 5-FU [Suspect]
     Active Substance: FLUOROURACIL
     Dosage: 2400 MG/M2, ONCE IN 2 DAYS
     Route: 041
     Dates: start: 20131024, end: 20131024
  158. 5-FU [Suspect]
     Active Substance: FLUOROURACIL
     Dosage: 400 MG/M2,  1X/DAY
     Route: 040
     Dates: start: 20131121, end: 20131121
  159. 5-FU [Suspect]
     Active Substance: FLUOROURACIL
     Dosage: 2400 MG/M2, ONCE IN 2 DAYS
     Route: 041
     Dates: start: 20131121, end: 20131121
  160. 5-FU [Suspect]
     Active Substance: FLUOROURACIL
     Dosage: 2400 MG/M2, ONCE IN 2 DAYS
     Dates: start: 20140130, end: 20140130
  161. 5-FU [Suspect]
     Active Substance: FLUOROURACIL
     Dosage: 400 MG/M2,  1X/DAY
     Route: 040
     Dates: start: 20140327, end: 20140327
  162. 5-FU [Suspect]
     Active Substance: FLUOROURACIL
     Dosage: 2400 MG/M2,ONCE IN 2 DAYS
     Route: 041
     Dates: start: 20140731, end: 20140731
  163. GASLON N OD [Concomitant]
     Dosage: UNK
     Dates: start: 20131128
  164. BESOFTEN [Concomitant]
     Active Substance: SODIUM ALGINATE
     Dosage: UNK
     Dates: start: 20131226
  165. MEYLON [Concomitant]
     Active Substance: SODIUM BICARBONATE
     Dosage: UNK
     Dates: start: 20150107, end: 20150107
  166. MEROPENEM. [Concomitant]
     Active Substance: MEROPENEM
     Dosage: UNK
     Dates: start: 20150107
  167. REMODULIN [Concomitant]
     Active Substance: TREPROSTINIL
     Dosage: UNK
     Dates: start: 20150107
  168. OMEPRAL [Concomitant]
     Active Substance: OMEPRAZOLE
     Dosage: UNK
     Dates: start: 20150107
  169. POTACOL-R [Concomitant]
     Dosage: UNK
     Dates: start: 20150110

REACTIONS (5)
  - Septic shock [Not Recovered/Not Resolved]
  - Disseminated intravascular coagulation [Recovering/Resolving]
  - Renal impairment [Recovering/Resolving]
  - Platelet count decreased [Not Recovered/Not Resolved]
  - Hyperkalaemia [Recovering/Resolving]

NARRATIVE: CASE EVENT DATE: 20150107
